FAERS Safety Report 6545517-9 (Version None)
Quarter: 2010Q1

REPORT INFORMATION
  Report Type: 
  Country: None (occurrence: None)
  Receive Date: 20100119
  Receipt Date: 20100104
  Transmission Date: 20100710
  Serious: Yes (Other)
  Sender: FDA-Public Use
  Company Number: 2010SP000021

PATIENT
  Age: 67 Year
  Sex: Male
  Weight: 75.8 kg

DRUGS (3)
  1. OMNARIS [Suspect]
     Indication: RHINITIS
     Dosage: 200 UG;QD; NASAL
     Route: 045
     Dates: start: 20100104
  2. VERAPAMIL (CON.) [Concomitant]
  3. HYDROCHLOROTHIAZIDE (CON.) [Concomitant]

REACTIONS (1)
  - SUPRAVENTRICULAR TACHYCARDIA [None]
